FAERS Safety Report 4303868-2 (Version None)
Quarter: 2004Q1

REPORT INFORMATION
  Report Type: 
  Country: None (occurrence: None)
  Receive Date: 20040225
  Receipt Date: 20030515
  Transmission Date: 20041129
  Serious: Yes (Death, Other)
  Sender: FDA-Public Use
  Company Number: RU-GLAXOSMITHKLINE-B0299798A

PATIENT
  Age: 75 Year
  Sex: Female
  Weight: 66 kg

DRUGS (3)
  1. SALMETEROL [Suspect]
     Indication: CHRONIC OBSTRUCTIVE AIRWAYS DISEASE
     Dosage: 50MCG TWICE PER DAY
     Route: 055
     Dates: start: 20011009, end: 20030515
  2. IPRATROPIUM BROMIDE [Concomitant]
  3. SALBUTAMOL SULPHATE [Concomitant]

REACTIONS (6)
  - CALCULUS URINARY [None]
  - CHOLECYSTITIS CHRONIC [None]
  - HAEMATURIA [None]
  - LEUKOCYTURIA [None]
  - LUNG NEOPLASM MALIGNANT [None]
  - PANCREATITIS CHRONIC [None]
